FAERS Safety Report 7310375-1 (Version None)
Quarter: 2011Q1

REPORT INFORMATION
  Report Type: 
  Country: None (occurrence: None)
  Receive Date: 20110210
  Receipt Date: 20110202
  Transmission Date: 20110831
  Serious: Yes (Hospitalization, Other)
  Sender: FDA-Public Use
  Company Number: 2010AC000277

PATIENT
  Sex: Male

DRUGS (6)
  1. COREG [Concomitant]
  2. ZESTRIL [Concomitant]
  3. DIGOXIN [Suspect]
     Dosage: PO
     Route: 048
     Dates: start: 20060301, end: 20080601
  4. ASPIRIN [Concomitant]
  5. DIGOXIN [Suspect]
     Dosage: 0.125 MG, QD, PO
     Route: 048
     Dates: start: 20070301
  6. LASIX [Concomitant]

REACTIONS (18)
  - PAIN [None]
  - COUGH [None]
  - VENTRICULAR TACHYCARDIA [None]
  - HYPOTENSION [None]
  - ANXIETY [None]
  - DRUG LEVEL BELOW THERAPEUTIC [None]
  - VISUAL IMPAIRMENT [None]
  - NAUSEA [None]
  - CARDIAC DISORDER [None]
  - DYSPNOEA [None]
  - MULTIPLE INJURIES [None]
  - ECONOMIC PROBLEM [None]
  - CHEST DISCOMFORT [None]
  - TREATMENT NONCOMPLIANCE [None]
  - WEIGHT DECREASED [None]
  - ISCHAEMIC CARDIOMYOPATHY [None]
  - UNEVALUABLE EVENT [None]
  - ERECTILE DYSFUNCTION [None]
